FAERS Safety Report 9547041 (Version 1)
Quarter: 2013Q3

REPORT INFORMATION
  Report Type: Spontaneous
  Country: US (occurrence: US)
  Receive Date: 20130924
  Receipt Date: 20130924
  Transmission Date: 20140515
  Serious: Yes (Other)
  Sender: FDA-Public Use
  Company Number: US-ASTRAZENECA-2013SE69590

PATIENT
  Age: 37 Year
  Sex: Female

DRUGS (4)
  1. LUVOX [Concomitant]
  2. SEROQUEL XR [Suspect]
     Indication: DEPRESSION
     Route: 048
     Dates: start: 20130911, end: 20130913
  3. ZYPREXA [Concomitant]
  4. KLONOPIN [Concomitant]

REACTIONS (5)
  - Convulsion [Unknown]
  - Thirst [Unknown]
  - Blood electrolytes abnormal [Unknown]
  - Hyponatraemia [Unknown]
  - Dry mouth [Unknown]
